FAERS Safety Report 6306927-8 (Version None)
Quarter: 2009Q3

REPORT INFORMATION
  Report Type: 
  Country: None (occurrence: None)
  Receive Date: 20090812
  Receipt Date: 20090806
  Transmission Date: 20100115
  Serious: Yes (Hospitalization)
  Sender: FDA-Public Use
  Company Number: US-ASTRAZENECA-2009SE07221

PATIENT
  Age: 77 Year
  Sex: Female
  Weight: 79.8 kg

DRUGS (12)
  1. CRESTOR [Suspect]
     Route: 048
     Dates: end: 20090625
  2. TRILIPIX [Suspect]
     Indication: BLOOD CHOLESTEROL INCREASED
     Dates: start: 20090616, end: 20090625
  3. ESOMEPRAZOLE MAGNESIUM [Concomitant]
  4. DULOXETINE HYDROCHLORIDE [Concomitant]
  5. ACETYLSALICYLIC ACID [Concomitant]
  6. ZANAFLEX [Concomitant]
  7. METOPROLOL [Concomitant]
  8. NITRO TAB [Concomitant]
  9. CELECOXIB [Concomitant]
  10. VICODIN [Concomitant]
     Dosage: 5/500 PRN DAILY
  11. LEVOTHYROXINE SODIUM [Concomitant]
  12. GLIMEPIRIDE [Concomitant]

REACTIONS (3)
  - MUSCLE SPASMS [None]
  - RENAL FAILURE ACUTE [None]
  - RHABDOMYOLYSIS [None]
